FAERS Safety Report 5308294-5 (Version None)
Quarter: 2007Q2

REPORT INFORMATION
  Report Type: 
  Country: None (occurrence: None)
  Receive Date: 20070423
  Receipt Date: 20070423
  Transmission Date: 20071010
  Serious: Yes (Life-Threatening)
  Sender: FDA-Public Use
  Company Number: None

PATIENT
  Sex: Female
  Weight: 97.5234 kg

DRUGS (1)
  1. OXYCODONE AND ACETAMINOPHEN [Suspect]
     Indication: MIGRAINE
     Dosage: 1-2 TABLETS  EVERY 4 HOURS  PO
     Route: 048
     Dates: start: 20070320, end: 20070320

REACTIONS (5)
  - DYSSTASIA [None]
  - ILL-DEFINED DISORDER [None]
  - MYALGIA [None]
  - MYOCARDIAL INFARCTION [None]
  - RESPIRATORY DISORDER [None]
